FAERS Safety Report 15814605 (Version 3)
Quarter: 2019Q1

REPORT INFORMATION
  Report Type: Spontaneous
  Country: CA (occurrence: CA)
  Receive Date: 20190111
  Receipt Date: 20190320
  Transmission Date: 20190417
  Serious: Yes (Other)
  Sender: FDA-Public Use
  Company Number: CA-BAUSCH-BL-2019-000988

PATIENT
  Age: 35 Year
  Sex: Female
  Weight: 104.87 kg

DRUGS (6)
  1. DULOXETINE. [Concomitant]
     Active Substance: DULOXETINE
     Indication: PRODUCT USED FOR UNKNOWN INDICATION
     Dosage: 60 MG IN THE MORNING; 30 CAPSULES RECEIVED
     Dates: start: 20160720
  2. ZAXINE (RIFAXIMIN) [Suspect]
     Active Substance: RIFAXIMIN
     Indication: GASTROINTESTINAL BACTERIAL OVERGROWTH
     Route: 048
     Dates: start: 201812, end: 20181227
  3. CONSTELLA [Concomitant]
     Active Substance: LINACLOTIDE
     Indication: PRODUCT USED FOR UNKNOWN INDICATION
     Dates: start: 201809
  4. NAPROXEN/ESOMEPRAZOLE [Concomitant]
     Indication: PAIN
     Dosage: 500MG/20MG COMBINATION PILL BID; PRN; 20 TABLETS RECEIVED
     Dates: start: 20181121
  5. ZAXINE (RIFAXIMIN) [Suspect]
     Active Substance: RIFAXIMIN
     Indication: PRODUCT USE IN UNAPPROVED INDICATION
  6. TRAMACET [Concomitant]
     Active Substance: ACETAMINOPHEN\TRAMADOL
     Indication: PAIN
     Dosage: 6 TABLETS DISPENSED
     Dates: start: 20181119

REACTIONS (2)
  - Product use in unapproved indication [Unknown]
  - Monoplegia [Not Recovered/Not Resolved]

NARRATIVE: CASE EVENT DATE: 201812
